FAERS Safety Report 10082096 (Version 2)
Quarter: 2014Q2

REPORT INFORMATION
  Report Type: Spontaneous
  Country: US (occurrence: US)
  Receive Date: 20140416
  Receipt Date: 20140627
  Transmission Date: 20141212
  Serious: Yes (Hospitalization)
  Sender: FDA-Public Use
  Company Number: US-BAYER-2014-056103

PATIENT
  Age: 24 Year
  Sex: Female
  Weight: 58.5 kg

DRUGS (5)
  1. MIRENA [Suspect]
     Indication: CONTRACEPTION
     Dosage: 20 MCG/24HR, CONT
     Route: 015
     Dates: start: 20090226, end: 20100412
  2. PRISTIQ [Concomitant]
     Dosage: 50 MG, UNK
  3. COLACE [Concomitant]
     Dosage: 100 MG, UNK
  4. PRENATE [FOLIC ACID,IRON,MINERALS NOS,VITAMINS NOS] [Concomitant]
  5. Z-PAK [Concomitant]

REACTIONS (10)
  - Embedded device [None]
  - Device dislocation [None]
  - Injury [None]
  - Pain [None]
  - Emotional distress [None]
  - Device issue [None]
  - Depression [Not Recovered/Not Resolved]
  - Anxiety [None]
  - Off label use [None]
  - Menorrhagia [None]
